FAERS Safety Report 8155249-1 (Version None)
Quarter: 2012Q1

REPORT INFORMATION
  Report Type: 
  Country: None (occurrence: None)
  Receive Date: 20120222
  Receipt Date: 20120213
  Transmission Date: 20120608
  Serious: No
  Sender: FDA-Public Use
  Company Number: US-BIOGENIDEC-2011BI046082

PATIENT
  Sex: Female

DRUGS (3)
  1. TYSABRI [Suspect]
     Indication: MULTIPLE SCLEROSIS
     Route: 042
     Dates: start: 20111121
  2. GILENYA [Concomitant]
     Indication: MULTIPLE SCLEROSIS
     Dates: end: 20100101
  3. AVONEX [Concomitant]
     Indication: MULTIPLE SCLEROSIS
     Route: 030
     Dates: start: 20070301

REACTIONS (5)
  - FATIGUE [None]
  - HYPERTONIC BLADDER [None]
  - ARTHRALGIA [None]
  - PAIN [None]
  - HEADACHE [None]
